FAERS Safety Report 9663580 (Version 1)
Quarter: 2013Q4

REPORT INFORMATION
  Report Type: Spontaneous
  Country: US (occurrence: US)
  Receive Date: 20131101
  Receipt Date: 20131101
  Transmission Date: 20140711
  Serious: Yes (Other)
  Sender: FDA-Public Use
  Company Number: US-PFIZER INC-2013309359

PATIENT
  Age: 54 Year
  Sex: Female
  Weight: 62.59 kg

DRUGS (1)
  1. CHANTIX [Suspect]
     Indication: SMOKING CESSATION THERAPY
     Dosage: UNK
     Route: 048
     Dates: end: 201307

REACTIONS (3)
  - Blood glucose decreased [Unknown]
  - Depression [Unknown]
  - Abnormal dreams [Unknown]
